FAERS Safety Report 9129530 (Version 2)
Quarter: 2013Q1

REPORT INFORMATION
  Report Type: Spontaneous
  Country: US (occurrence: US)
  Receive Date: 20130228
  Receipt Date: 20130318
  Transmission Date: 20140127
  Serious: Yes (Other)
  Sender: FDA-Public Use
  Company Number: US-PFIZER INC-2013068648

PATIENT
  Age: 53 Year
  Sex: Male

DRUGS (4)
  1. LYRICA [Suspect]
     Dosage: UNK
  2. AMRIX [Suspect]
     Dosage: UNK
  3. CYMBALTA [Suspect]
     Dosage: UNK
  4. WELLBUTRIN [Suspect]
     Dosage: UNK

REACTIONS (6)
  - Serotonin syndrome [Recovered/Resolved]
  - Hyperhidrosis [Recovered/Resolved]
  - Tachycardia [Recovered/Resolved]
  - Agitation [Recovered/Resolved]
  - Tremor [Recovered/Resolved]
  - Clonus [Recovered/Resolved]
